FAERS Safety Report 4947579-9 (Version None)
Quarter: 2006Q1

REPORT INFORMATION
  Report Type: 
  Country: None (occurrence: None)
  Receive Date: 20060320
  Receipt Date: 20060314
  Transmission Date: 20060701
  Serious: Yes (Death, Hospitalization, Other)
  Sender: FDA-Public Use
  Company Number: PHEH2006US03386

PATIENT
  Age: 50 Year
  Sex: Female

DRUGS (12)
  1. ULTRAM [Concomitant]
  2. NEURONTIN [Concomitant]
  3. EFFEXOR [Concomitant]
  4. LISINOPRIL [Concomitant]
  5. CLONIDINE [Concomitant]
  6. ADALAT [Concomitant]
  7. ADVAIR DISKUS 100/50 [Concomitant]
  8. ALBUTEROL [Concomitant]
  9. ATROVENT [Concomitant]
  10. ZANTAC [Concomitant]
  11. ANALGESICS [Suspect]
     Indication: BACK PAIN
  12. METOPROLOL TARTRATE [Suspect]
     Indication: HYPERTENSION
     Dosage: 100 MG, BID

REACTIONS (6)
  - CARDIOMEGALY [None]
  - COMPLETED SUICIDE [None]
  - CYANOSIS [None]
  - INTENTIONAL OVERDOSE [None]
  - PHYSICAL ASSAULT [None]
  - SUICIDAL IDEATION [None]
